FAERS Safety Report 18988014 (Version 3)
Quarter: 2021Q4

REPORT INFORMATION
  Report Type: Report from Study
  Country: US (occurrence: US)
  Receive Date: 20210309
  Receipt Date: 20211111
  Transmission Date: 20220304
  Serious: No
  Sender: FDA-Public Use
  Company Number: NVSC2021US053095

PATIENT
  Age: 22 Year
  Sex: Male

DRUGS (2)
  1. ENTRESTO [Suspect]
     Active Substance: SACUBITRIL\VALSARTAN
     Indication: Product used for unknown indication
     Dosage: UNK, BID
     Route: 048
  2. ENTRESTO [Suspect]
     Active Substance: SACUBITRIL\VALSARTAN
     Dosage: 1 DF, BID(49/51 MG)
     Route: 048

REACTIONS (6)
  - Therapeutic response unexpected [Unknown]
  - Blood pressure decreased [Unknown]
  - Throat clearing [Unknown]
  - Fatigue [Unknown]
  - Rhinorrhoea [Unknown]
  - Cough [Unknown]
